FAERS Safety Report 7341990-7 (Version None)
Quarter: 2011Q1

REPORT INFORMATION
  Report Type: 
  Country: None (occurrence: None)
  Receive Date: 20110309
  Receipt Date: 20110304
  Transmission Date: 20110831
  Serious: Yes (Death, Life-Threatening, Hospitalization, Other)
  Sender: FDA-Public Use
  Company Number: US-ELI_LILLY_AND_COMPANY-US201103002094

PATIENT
  Sex: Female

DRUGS (2)
  1. HYDROCODONE BITARTRATE [Concomitant]
  2. FORTEO [Suspect]
     Indication: OSTEOPOROSIS
     Dosage: 20 UG, DAILY (1/D)
     Dates: start: 20090101, end: 20101230

REACTIONS (5)
  - HAEMORRHAGE [None]
  - DEHYDRATION [None]
  - FALL [None]
  - VOMITING [None]
  - CARDIO-RESPIRATORY ARREST [None]
